FAERS Safety Report 9668151 (Version 1)
Quarter: 2013Q4

REPORT INFORMATION
  Report Type: Spontaneous
  Country: US (occurrence: US)
  Receive Date: 20131104
  Receipt Date: 20131104
  Transmission Date: 20140711
  Serious: No
  Sender: FDA-Public Use
  Company Number: US-PFIZER INC-2013312843

PATIENT
  Age: 65 Year
  Sex: Female
  Weight: 54.42 kg

DRUGS (1)
  1. CHANTIX [Suspect]
     Indication: SMOKING CESSATION THERAPY
     Dosage: UNK
     Dates: start: 20131009, end: 20131018

REACTIONS (2)
  - Depression [Unknown]
  - Dyspnoea [Not Recovered/Not Resolved]
